FAERS Safety Report 17459022 (Version 1)
Quarter: 2020Q1

REPORT INFORMATION
  Report Type: Spontaneous
  Country: FR (occurrence: FR)
  Receive Date: 20200226
  Receipt Date: 20200226
  Transmission Date: 20200409
  Serious: Yes (Other)
  Sender: FDA-Public Use
  Company Number: FR-MYLANLABS-2020M1020159

PATIENT
  Age: 14 Year
  Sex: Female
  Weight: 37.3 kg

DRUGS (5)
  1. METHOTREXATE. [Suspect]
     Active Substance: METHOTREXATE
     Indication: OSTEOSARCOMA
     Dosage: NON RENSEIGNEE
     Route: 058
     Dates: start: 20181210, end: 201903
  2. CISPLATINE [Concomitant]
     Active Substance: CISPLATIN
     Indication: OSTEOSARCOMA
     Dosage: INCONNU
     Route: 042
     Dates: start: 20190408
  3. DOXORUBICINE                       /00330901/ [Concomitant]
     Active Substance: DOXORUBICIN
     Indication: OSTEOSARCOMA
     Dosage: INCONNU
     Route: 042
     Dates: start: 20190408
  4. ETOPOSIDE. [Concomitant]
     Active Substance: ETOPOSIDE
     Indication: OSTEOSARCOMA
     Dosage: INCONNU
     Route: 042
     Dates: start: 20190102
  5. IFOSFAMIDE. [Concomitant]
     Active Substance: IFOSFAMIDE
     Indication: OSTEOSARCOMA
     Dosage: INCONNU
     Route: 042
     Dates: start: 20190102

REACTIONS (2)
  - Skin toxicity [Recovered/Resolved]
  - Erythema [Recovered/Resolved]

NARRATIVE: CASE EVENT DATE: 20181226
